FAERS Safety Report 5732539-0 (Version None)
Quarter: 2008Q2

REPORT INFORMATION
  Report Type: 
  Country: None (occurrence: None)
  Receive Date: 20080507
  Receipt Date: 20080421
  Transmission Date: 20081010
  Serious: Yes (Other)
  Sender: FDA-Public Use
  Company Number: S08-ESP-01628-01

PATIENT
  Age: 63 Year
  Sex: Female

DRUGS (5)
  1. ESCITALOPRAM [Suspect]
     Indication: ANXIETY
     Dosage: 15 MG QD PO
     Route: 048
     Dates: start: 20080101, end: 20080101
  2. ESCITALOPRAM [Suspect]
     Indication: DEPRESSION
     Dosage: 15 MG QD PO
     Route: 048
     Dates: start: 20080101, end: 20080101
  3. ESCITALOPRAM [Suspect]
     Indication: ANXIETY
     Dosage: 7.5 MG QD PO
     Route: 048
     Dates: start: 20080101
  4. ESCITALOPRAM [Suspect]
     Indication: DEPRESSION
     Dosage: 7.5 MG QD PO
     Route: 048
     Dates: start: 20080101
  5. BENZODIAZEPINE (NOS) [Concomitant]

REACTIONS (1)
  - FAECAL INCONTINENCE [None]
